FAERS Safety Report 4699863-4 (Version None)
Quarter: 2005Q2

REPORT INFORMATION
  Report Type: 
  Country: None (occurrence: None)
  Receive Date: 20050624
  Receipt Date: 19980325
  Transmission Date: 20051028
  Serious: Yes (Hospitalization)
  Sender: FDA-Public Use
  Company Number: US-MERCK-98032127

PATIENT
  Age: 76 Year
  Sex: Female

DRUGS (4)
  1. FOSAMAX [Suspect]
     Indication: OSTEOPOROSIS
     Route: 048
     Dates: start: 19961001, end: 19980101
  2. VITAMINS [Concomitant]
     Route: 065
  3. [THERAPY UNSPECIFIED] [Concomitant]
     Indication: HYPERTENSION
     Route: 065
  4. DETROL [Concomitant]
     Route: 065

REACTIONS (4)
  - DECREASED APPETITE [None]
  - DYSGEUSIA [None]
  - OESOPHAGEAL ULCER [None]
  - WEIGHT DECREASED [None]
